FAERS Safety Report 25478320 (Version 3)
Quarter: 2025Q3

REPORT INFORMATION
  Report Type: Report from Study
  Country: US (occurrence: US)
  Receive Date: 20250625
  Receipt Date: 20250728
  Transmission Date: 20251020
  Serious: Yes (Hospitalization, Other)
  Sender: BAYER HEALTHCARE PHARMACEUTICALS INC.
  Company Number: US-BAYER-2025A083363

PATIENT
  Age: 67 Year
  Sex: Male

DRUGS (2)
  1. FINERENONE [Suspect]
     Active Substance: FINERENONE
     Indication: Chronic kidney disease
     Dosage: 10 MG, QD
     Route: 048
  2. ASPIRIN [Concomitant]
     Active Substance: ASPIRIN

REACTIONS (5)
  - Haematemesis [None]
  - Colonoscopy [None]
  - Acute kidney injury [None]
  - Gastrointestinal haemorrhage [None]
  - Renal ischaemia [None]

NARRATIVE: CASE EVENT DATE: 20250606
